FAERS Safety Report 4281345-5 (Version None)
Quarter: 2004Q1

REPORT INFORMATION
  Report Type: 
  Country: None (occurrence: None)
  Receive Date: 20040112
  Receipt Date: 20030407
  Transmission Date: 20041129
  Serious: Yes (Other)
  Sender: FDA-Public Use
  Company Number: NSADSS2003016787

PATIENT
  Age: 73 Year
  Sex: Female

DRUGS (3)
  1. REOPRO [Suspect]
     Indication: ACUTE MYOCARDIAL INFARCTION
     Dosage: , 1 IN 1 AS NECESSARY, INTRAVENOUS BOLUS
     Route: 040
  2. ANGIOMAX [Concomitant]
  3. ASPIRIN [Concomitant]

REACTIONS (2)
  - HAEMORRHAGE [None]
  - THROMBOCYTOPENIA [None]
